FAERS Safety Report 5192082-7 (Version None)
Quarter: 2006Q4

REPORT INFORMATION
  Report Type: 
  Country: None (occurrence: None)
  Receive Date: 20061227
  Receipt Date: 20061221
  Transmission Date: 20070319
  Serious: Yes (Hospitalization)
  Sender: FDA-Public Use
  Company Number: US-SOLVAY-00206004205

PATIENT
  Sex: Female

DRUGS (4)
  1. CREON [Suspect]
     Indication: CYSTIC FIBROSIS
     Dosage: UNKNOWN
     Route: 048
  2. CREON [Suspect]
     Dosage: 12- 14 CAPSULES WITH MEALS AND  8-10 CAPSULES WITH SNACK
     Route: 048
  3. CREON [Suspect]
     Dosage: UNKNOWN
     Route: 048
  4. PANGESTYME CN20 [Suspect]
     Indication: CYSTIC FIBROSIS
     Dosage: DAILY DOSE:  UNKNOWN
     Route: 048
     Dates: start: 20020901, end: 20020901

REACTIONS (1)
  - DISTAL ILEAL OBSTRUCTION SYNDROME [None]
